FAERS Safety Report 7462718-6 (Version None)
Quarter: 2011Q2

REPORT INFORMATION
  Report Type: 
  Country: None (occurrence: None)
  Receive Date: 20110506
  Receipt Date: 20110408
  Transmission Date: 20111010
  Serious: Yes (Life-Threatening, Hospitalization, Other)
  Sender: FDA-Public Use
  Company Number: US-BAYER-201018852NA

PATIENT
  Age: 21 Year
  Sex: Female
  Weight: 97 kg

DRUGS (3)
  1. CLINDAMYCIN [Concomitant]
  2. KEFLEX [Concomitant]
  3. YASMIN [Suspect]
     Indication: MENSTRUATION IRREGULAR
     Route: 048

REACTIONS (4)
  - NEPHROLITHIASIS [None]
  - THROMBOSIS [None]
  - ORGAN FAILURE [None]
  - DEEP VEIN THROMBOSIS [None]
